FAERS Safety Report 4772950-8 (Version None)
Quarter: 2005Q3

REPORT INFORMATION
  Report Type: 
  Country: None (occurrence: None)
  Receive Date: 20050919
  Receipt Date: 20030205
  Transmission Date: 20060218
  Serious: Yes (Hospitalization)
  Sender: FDA-Public Use
  Company Number: JP-BRACCO-BRO-006140

PATIENT
  Age: 48 Year
  Sex: Female

DRUGS (4)
  1. IOPAMIRON [Suspect]
     Indication: SUBARACHNOID HAEMORRHAGE
     Route: 013
     Dates: start: 20030107, end: 20030107
  2. IOPAMIRON [Suspect]
     Route: 013
     Dates: start: 20030107, end: 20030107
  3. IOPAMIRON [Suspect]
     Indication: INTRACRANIAL ANEURYSM
     Route: 013
     Dates: start: 20030110, end: 20030110
  4. IOPAMIRON [Suspect]
     Route: 013
     Dates: start: 20030110, end: 20030110

REACTIONS (7)
  - DEPRESSED LEVEL OF CONSCIOUSNESS [None]
  - LIP HAEMORRHAGE [None]
  - MOUTH INJURY [None]
  - NON-CARDIOGENIC PULMONARY OEDEMA [None]
  - OXYGEN SATURATION DECREASED [None]
  - PO2 DECREASED [None]
  - PULMONARY ALVEOLAR HAEMORRHAGE [None]
